FAERS Safety Report 11503431 (Version 4)
Quarter: 2018Q3

REPORT INFORMATION
  Report Type: Spontaneous
  Country: US (occurrence: US)
  Receive Date: 20150914
  Receipt Date: 20180913
  Transmission Date: 20181010
  Serious: Yes (Other)
  Sender: FDA-Public Use
  Company Number: US-ASTELLAS-2015US025145

PATIENT
  Sex: Male

DRUGS (2)
  1. XTANDI [Suspect]
     Active Substance: ENZALUTAMIDE
     Indication: PROSTATE CANCER
     Route: 048
     Dates: start: 20150319, end: 201710
  2. LUPRON [Concomitant]
     Active Substance: LEUPROLIDE ACETATE
     Indication: PRODUCT USED FOR UNKNOWN INDICATION
     Dosage: UNK UNK, UNKNOWN FREQ.
     Route: 065

REACTIONS (9)
  - Fatigue [Unknown]
  - Depression [Unknown]
  - Decreased appetite [Unknown]
  - Drug ineffective [Unknown]
  - Gait inability [Recovered/Resolved]
  - Feeling of body temperature change [Unknown]
  - Anger [Unknown]
  - Mood swings [Unknown]
  - Malignant neoplasm progression [Unknown]
